FAERS Safety Report 19514164 (Version 1)
Quarter: 2021Q3

REPORT INFORMATION
  Report Type: Spontaneous
  Country: CO (occurrence: CO)
  Receive Date: 20210709
  Receipt Date: 20210709
  Transmission Date: 20211014
  Serious: Yes (Death)
  Sender: FDA-Public Use
  Company Number: CO-009507513-2107COL001209

PATIENT
  Sex: Male

DRUGS (1)
  1. ISENTRESS [Suspect]
     Active Substance: RALTEGRAVIR POTASSIUM
     Indication: ANTIRETROVIRAL THERAPY
     Dosage: 1200 MILLIGRAM OID ? 4 TO 5 MONTHS APPROXIMATELY
     Route: 048

REACTIONS (2)
  - Dyslipidaemia [Unknown]
  - COVID-19 [Fatal]
